FAERS Safety Report 5971546-X (Version None)
Quarter: 2008Q4

REPORT INFORMATION
  Report Type: 
  Country: None (occurrence: None)
  Receive Date: 20081201
  Receipt Date: 20080930
  Transmission Date: 20090506
  Serious: No
  Sender: FDA-Public Use
  Company Number: US-AMGEN-KDL307913

PATIENT
  Sex: Male

DRUGS (9)
  1. ENBREL [Suspect]
     Indication: PSORIASIS
     Route: 058
     Dates: start: 20070530
  2. LORTAB [Concomitant]
     Dates: start: 19950301
  3. FIORICET [Concomitant]
     Dates: start: 19950301
  4. ZOCOR [Concomitant]
  5. PRILOSEC [Concomitant]
     Dates: start: 20030401
  6. LISINOPRIL [Concomitant]
  7. TYLENOL (CAPLET) [Concomitant]
     Dates: start: 20020101
  8. SLEEPING MEDICATION NOS [Concomitant]
     Dates: start: 19780701
  9. POLYETHYLENE GLYCOL [Concomitant]

REACTIONS (1)
  - TUBERCULOSIS TEST POSITIVE [None]
